FAERS Safety Report 7378659-9 (Version None)
Quarter: 2011Q1

REPORT INFORMATION
  Report Type: 
  Country: None (occurrence: None)
  Receive Date: 20110317
  Receipt Date: 20110302
  Transmission Date: 20110831
  Serious: Yes (Hospitalization)
  Sender: FDA-Public Use
  Company Number: 2010SP025057

PATIENT
  Age: 32 Year
  Sex: Female
  Weight: 86 kg

DRUGS (2)
  1. ETONOGESTREL (INTRA-UTERINE SYSTEM) (ETONOGESTREL / 01502301/) [Suspect]
     Indication: CONTRACEPTION
     Dosage: 61 MG; IU
     Route: 015
     Dates: start: 20100202, end: 20100301
  2. PARACETAMOL [Concomitant]

REACTIONS (1)
  - PELVIC INFLAMMATORY DISEASE [None]
